FAERS Safety Report 25290302 (Version 1)
Quarter: 2025Q2

REPORT INFORMATION
  Report Type: Spontaneous
  Country: AU (occurrence: AU)
  Receive Date: 20250510
  Receipt Date: 20250510
  Transmission Date: 20250717
  Serious: Yes (Death, Hospitalization, Other)
  Sender: BRAEBURN PHARMACEUTICALS
  Company Number: AU-Camurus-CAM-2025-000526

PATIENT

DRUGS (7)
  1. BUPRENORPHINE [Suspect]
     Active Substance: BUPRENORPHINE
     Indication: Product used for unknown indication
     Route: 065
     Dates: start: 2022, end: 2022
  2. INVEGA [Suspect]
     Active Substance: PALIPERIDONE
     Indication: Product used for unknown indication
     Route: 065
     Dates: end: 2022
  3. ACETAMINOPHEN [Suspect]
     Active Substance: ACETAMINOPHEN
     Indication: Pain
     Dosage: 4GM, DAILY, AS NEEDED
     Route: 048
     Dates: start: 2022, end: 2022
  4. ACETAMINOPHEN [Suspect]
     Active Substance: ACETAMINOPHEN
     Indication: Pyrexia
     Route: 048
     Dates: start: 2022, end: 2022
  5. ACETAMINOPHEN [Suspect]
     Active Substance: ACETAMINOPHEN
     Route: 065
     Dates: start: 20220725, end: 20221114
  6. ACETAMINOPHEN [Suspect]
     Active Substance: ACETAMINOPHEN
     Dosage: 4 GRAM, QD, AS NEEDED
     Route: 048
  7. ACETAMINOPHEN [Suspect]
     Active Substance: ACETAMINOPHEN
     Route: 065

REACTIONS (9)
  - Pneumonia [Fatal]
  - Urinary retention [Fatal]
  - Adverse event [Fatal]
  - Tachycardia [Fatal]
  - Constipation [Fatal]
  - Acute hepatic failure [Fatal]
  - Overdose [Fatal]
  - Product dispensing error [Fatal]
  - Immobile [Unknown]

NARRATIVE: CASE EVENT DATE: 20220101
